FAERS Safety Report 8108908-0 (Version None)
Quarter: 2012Q1

REPORT INFORMATION
  Report Type: 
  Country: None (occurrence: None)
  Receive Date: 20120202
  Receipt Date: 20120131
  Transmission Date: 20120608
  Serious: Yes (Hospitalization)
  Sender: FDA-Public Use
  Company Number: US-GLAXOSMITHKLINE-A0964044A

PATIENT
  Sex: Female
  Weight: 68 kg

DRUGS (1)
  1. FLOLAN [Suspect]
     Indication: COR PULMONALE CHRONIC
     Dosage: 16NGKM SEE DOSAGE TEXT
     Route: 042
     Dates: start: 19990927

REACTIONS (7)
  - CATHETER SITE OEDEMA [None]
  - SPINAL FRACTURE [None]
  - RIB FRACTURE [None]
  - FRACTURED COCCYX [None]
  - CATHETER SITE ERYTHEMA [None]
  - WRIST FRACTURE [None]
  - FALL [None]
